FAERS Safety Report 13757377 (Version 2)
Quarter: 2017Q3

REPORT INFORMATION
  Report Type: Spontaneous
  Country: CH (occurrence: CH)
  Receive Date: 20170716
  Receipt Date: 20170720
  Transmission Date: 20171127
  Serious: Yes (Life-Threatening, Hospitalization, Other)
  Sender: FDA-Public Use
  Company Number: CH-BEH-2017081273

PATIENT
  Age: 69 Year
  Sex: Male
  Weight: 99 kg

DRUGS (3)
  1. PRIVIGEN [Suspect]
     Active Substance: HUMAN IMMUNOGLOBULIN G
     Dosage: 40 G, TOT  (INFUSION RATE: 30 ML/H TO 400 ML/H)
     Route: 042
  2. PRIVIGEN [Suspect]
     Active Substance: HUMAN IMMUNOGLOBULIN G
     Indication: POLYNEUROPATHY
     Dosage: 80 G, TOT (INFUSION RATE: 30 ML/H TO 400 ML/H)
     Route: 042
     Dates: start: 20170525, end: 20170527
  3. PRIVIGEN [Suspect]
     Active Substance: HUMAN IMMUNOGLOBULIN G
     Dosage: 40 G, TOT  (INFUSION RATE: 30 ML/H TO 400 ML/H)
     Route: 042

REACTIONS (2)
  - Pleural effusion [Unknown]
  - Fluid overload [Recovered/Resolved]

NARRATIVE: CASE EVENT DATE: 20170526
